FAERS Safety Report 7303913-6 (Version None)
Quarter: 2011Q1

REPORT INFORMATION
  Report Type: 
  Country: None (occurrence: None)
  Receive Date: 20110221
  Receipt Date: 20110217
  Transmission Date: 20110831
  Serious: Yes (Death)
  Sender: FDA-Public Use
  Company Number: A0913814A

PATIENT

DRUGS (2)
  1. ZYBAN [Suspect]
     Route: 048
  2. NICOTINE [Suspect]
     Route: 062

REACTIONS (1)
  - DEATH [None]
